FAERS Safety Report 9146171 (Version 1)
Quarter: 2013Q1

REPORT INFORMATION
  Report Type: Spontaneous
  Country: US (occurrence: None)
  Receive Date: 20130227
  Receipt Date: 20130227
  Transmission Date: 20140127
  Serious: Yes (Other)
  Sender: FDA-Public Use
  Company Number: None

PATIENT
  Age: 16 Year
  Sex: Female
  Weight: 44.45 kg

DRUGS (1)
  1. MONTELUKAST [Suspect]
     Indication: ASTHMA
     Dosage: 1 DAILY PO
     Route: 048
     Dates: start: 20130120, end: 20130215

REACTIONS (3)
  - Abdominal pain upper [None]
  - Product substitution issue [None]
  - Pain [None]
